FAERS Safety Report 25941298 (Version 1)
Quarter: 2025Q4

REPORT INFORMATION
  Report Type: Spontaneous
  Country: US (occurrence: None)
  Receive Date: 20251019
  Receipt Date: 20251019
  Transmission Date: 20260117
  Serious: Yes (Other)
  Sender: FDA-CTU
  Company Number: None

PATIENT
  Age: 43 Year
  Sex: Female
  Weight: 54.45 kg

DRUGS (3)
  1. TIRZEPATIDE [Suspect]
     Active Substance: TIRZEPATIDE
     Dosage: 2 INJECTION(S) S NEEDED INTRMUSCULAR
     Route: 030
  2. Phenobarbital 60 ml per day [Concomitant]
  3. NAD+ [Concomitant]

REACTIONS (4)
  - Insomnia [None]
  - Anxiety [None]
  - Palpitations [None]
  - Middle insomnia [None]

NARRATIVE: CASE EVENT DATE: 20251017
